FAERS Safety Report 9610709 (Version 1)
Quarter: 2013Q4

REPORT INFORMATION
  Report Type: Spontaneous
  Country: US (occurrence: US)
  Receive Date: 20131009
  Receipt Date: 20131009
  Transmission Date: 20140711
  Serious: Yes (Hospitalization, Other)
  Sender: FDA-Public Use
  Company Number: PHHY2013US111064

PATIENT
  Age: 54 Year
  Sex: Male

DRUGS (7)
  1. RIBAVIRIN [Suspect]
     Indication: HEPATITIS C
     Dates: start: 200906
  2. RIBAVIRIN [Suspect]
     Dosage: 800 UNK, UNK
  3. RIBAVIRIN [Suspect]
     Dosage: 600 MG, UNK
  4. RIBAVIRIN [Suspect]
     Dosage: 200 MG, UNK
  5. TACROLIMUS [Suspect]
  6. BOCEPREVIR [Suspect]
  7. PEGYLATED INTERFERON ALFA-2A [Suspect]
     Indication: HEPATITIS C
     Dates: start: 200906

REACTIONS (4)
  - Anaemia [Unknown]
  - Syncope [Unknown]
  - Fatigue [Unknown]
  - Hepatitis C [Unknown]
